FAERS Safety Report 5657283-X (Version None)
Quarter: 2008Q1

REPORT INFORMATION
  Report Type: 
  Country: None (occurrence: None)
  Receive Date: 20080310
  Receipt Date: 20080227
  Transmission Date: 20080703
  Serious: Yes (Other)
  Sender: FDA-Public Use
  Company Number: SE-PFIZER INC-2008018118

PATIENT
  Sex: Male

DRUGS (12)
  1. ATORVASTATIN CALCIUM [Suspect]
     Route: 048
  2. LEUPRORELIN [Suspect]
  3. CIPROFLOXACIN [Suspect]
     Indication: URINARY TRACT INFECTION
     Route: 048
     Dates: start: 20071101, end: 20071101
  4. WARFARIN SODIUM [Suspect]
     Indication: VENOUS THROMBOSIS
     Route: 048
  5. METOPROLOL TARTRATE [Concomitant]
     Route: 048
  6. ENALAPRIL MALEATE [Concomitant]
     Route: 048
  7. HYDROCORTONE [Concomitant]
     Route: 048
  8. IMPUGAN [Concomitant]
     Route: 048
  9. LEVOTHYROXINE SODIUM [Concomitant]
     Route: 048
  10. SPIRONOLACTONE [Concomitant]
     Route: 048
  11. ASPIRIN [Concomitant]
     Route: 048
  12. NOVOLOG MIX 70/30 [Concomitant]
     Route: 058

REACTIONS (2)
  - CHOLESTASIS [None]
  - PROTHROMBIN LEVEL DECREASED [None]
